FAERS Safety Report 14420073 (Version 1)
Quarter: 2018Q1

REPORT INFORMATION
  Report Type: Spontaneous
  Country: US (occurrence: US)
  Receive Date: 20180122
  Receipt Date: 20180122
  Transmission Date: 20180509
  Serious: No
  Sender: FDA-Public Use
  Company Number: US-ROCHE-1865709

PATIENT
  Age: 63 Year
  Sex: Female

DRUGS (1)
  1. RITUXAN [Suspect]
     Active Substance: RITUXIMAB
     Indication: RHEUMATOID ARTHRITIS
     Dosage: ONGOING;UNKNOWN (500 MG/50 ML)
     Route: 042
     Dates: start: 20161205

REACTIONS (5)
  - Ear swelling [Recovering/Resolving]
  - Mouth swelling [Recovering/Resolving]
  - Erythema [Recovering/Resolving]
  - Throat irritation [Recovering/Resolving]
  - Oral mucosal erythema [Recovering/Resolving]

NARRATIVE: CASE EVENT DATE: 20161205
